FAERS Safety Report 4628054-8 (Version None)
Quarter: 2005Q2

REPORT INFORMATION
  Report Type: 
  Country: None (occurrence: None)
  Receive Date: 20050405
  Receipt Date: 20050405
  Transmission Date: 20051028
  Serious: Yes (Other)
  Sender: FDA-Public Use
  Company Number: None

PATIENT
  Sex: Female
  Weight: 76.6579 kg

DRUGS (1)
  1. FENTANYL 50 MCG PATCH [Suspect]
     Indication: INTERVERTEBRAL DISC DEGENERATION
     Dosage: 1 Q 3D FOR PAIN

REACTIONS (1)
  - THERAPY NON-RESPONDER [None]
